FAERS Safety Report 4415988-2 (Version None)
Quarter: 2004Q3

REPORT INFORMATION
  Report Type: 
  Country: None (occurrence: None)
  Receive Date: 20040802
  Receipt Date: 20040726
  Transmission Date: 20050211
  Serious: Yes (Hospitalization)
  Sender: FDA-Public Use
  Company Number: 2004CG01477

PATIENT
  Age: 62 Year
  Sex: Male

DRUGS (5)
  1. XYLOCAINE [Suspect]
     Dates: start: 20030626, end: 20030626
  2. DIPRIVAN [Suspect]
     Dates: start: 20030626, end: 20030626
  3. HYPNOVEL [Suspect]
     Dates: start: 20030626, end: 20030626
  4. SUFENTA [Suspect]
     Dates: start: 20030626, end: 20030626
  5. CEFUROXIME AXETIL [Suspect]
     Dates: start: 20030626, end: 20030626

REACTIONS (1)
  - BRONCHOSPASM [None]
